FAERS Safety Report 7860234-0 (Version None)
Quarter: 2011Q4

REPORT INFORMATION
  Report Type: 
  Country: None (occurrence: None)
  Receive Date: 20111027
  Receipt Date: 20111012
  Transmission Date: 20120403
  Serious: Yes (Other)
  Sender: FDA-Public Use
  Company Number: US-ROCHE-1004443

PATIENT

DRUGS (1)
  1. AVASTIN [Suspect]
     Indication: RETINOPATHY OF PREMATURITY
     Route: 050

REACTIONS (5)
  - OCULAR VASCULAR DISORDER [None]
  - RETINAL DETACHMENT [None]
  - INTRAOCULAR PRESSURE INCREASED [None]
  - VITREOUS HAEMORRHAGE [None]
  - EYE DISORDER [None]
